FAERS Safety Report 12633787 (Version 1)
Quarter: 2016Q3

REPORT INFORMATION
  Report Type: Spontaneous
  Country: JO (occurrence: JO)
  Receive Date: 20160809
  Receipt Date: 20160809
  Transmission Date: 20161109
  Serious: Yes (Hospitalization, Other)
  Sender: FDA-Public Use
  Company Number: JO-PFIZER INC-2016358709

PATIENT
  Age: 53 Year
  Sex: Female
  Weight: 56 kg

DRUGS (6)
  1. ZOFRAN [Concomitant]
     Active Substance: ONDANSETRON HYDROCHLORIDE
     Dosage: 8 MG, DAY 2,3
  2. DECADRON [Concomitant]
     Active Substance: DEXAMETHASONE
     Dosage: 16 MG, DAY -1,1,2
  3. XELODA [Concomitant]
     Active Substance: CAPECITABINE
     Dosage: 3000 /DAY
  4. DOCETAXEL. [Suspect]
     Active Substance: DOCETAXEL
     Indication: METASTASES TO LUNG
     Dosage: 120 UNK, /3 WEEKS
     Dates: start: 2016, end: 2016
  5. ZOFRAN [Concomitant]
     Active Substance: ONDANSETRON HYDROCHLORIDE
     Dosage: 8 MG, DAY 1
     Route: 042
  6. ZARZIO [Concomitant]
     Active Substance: FILGRASTIM
     Dosage: 300 DA 5,6,7
     Route: 058

REACTIONS (3)
  - Nail discolouration [Unknown]
  - Vasculitis [Unknown]
  - Ulcer [Unknown]
